FAERS Safety Report 23197321 (Version 1)
Quarter: 2023Q4

REPORT INFORMATION
  Report Type: Spontaneous
  Country: FR (occurrence: FR)
  Receive Date: 20231117
  Receipt Date: 20231117
  Transmission Date: 20240110
  Serious: Yes (Hospitalization)
  Sender: FDA-Public Use
  Company Number: FR-SUN PHARMACEUTICAL INDUSTRIES LTD-2023RR-418241

PATIENT
  Age: 84 Year
  Sex: Female
  Weight: 69.4 kg

DRUGS (9)
  1. ESOMEPRAZOLE [Suspect]
     Active Substance: ESOMEPRAZOLE
     Indication: Rhinitis
     Dosage: 20 MILLIGRAM, DAILY
     Route: 048
     Dates: end: 20230717
  2. SERETIDE [Suspect]
     Active Substance: FLUTICASONE PROPIONATE\SALMETEROL XINAFOATE
     Indication: Asthma
     Dosage: 3 DOSAGE FORM, DAILY
     Route: 055
     Dates: end: 20230717
  3. DULOXETINE [Suspect]
     Active Substance: DULOXETINE
     Indication: Mixed anxiety and depressive disorder
     Dosage: 90 MILLIGRAM, DAILY
     Route: 048
  4. AZELASTINE [Suspect]
     Active Substance: AZELASTINE\AZELASTINE HYDROCHLORIDE
     Indication: Rhinitis
     Dosage: 2 DOSAGE FORM, DAILY
     Route: 045
     Dates: end: 20230717
  5. LEVOTHYROXINE [Suspect]
     Active Substance: LEVOTHYROXINE
     Indication: Product used for unknown indication
     Dosage: 1 DOSAGE FORM, DAILY
     Route: 048
  6. ALPRAZOLAM [Suspect]
     Active Substance: ALPRAZOLAM
     Indication: Mixed anxiety and depressive disorder
     Dosage: 1.5 MILLIGRAM, DAILY
     Route: 048
     Dates: end: 20230717
  7. ACTIVATED CHARCOAL\MAGNESIUM OXIDE\SIMETHICONE [Suspect]
     Active Substance: ACTIVATED CHARCOAL\MAGNESIUM OXIDE\SIMETHICONE
     Indication: Rhinitis
     Dosage: 6 DOSAGE FORM, DAILY
     Route: 048
     Dates: end: 20230717
  8. CHOLECALCIFEROL [Concomitant]
     Active Substance: CHOLECALCIFEROL
     Indication: Product used for unknown indication
     Dosage: 1 DOSAGE FORM, MONTHLY
     Route: 048
  9. ALBUTEROL SULFATE [Concomitant]
     Active Substance: ALBUTEROL SULFATE
     Indication: Product used for unknown indication
     Dosage: 1 DOSAGE FORM, 1DOSE/ASNECESSA
     Route: 055

REACTIONS (2)
  - Hepatic cytolysis [Not Recovered/Not Resolved]
  - Hepatic failure [Not Recovered/Not Resolved]

NARRATIVE: CASE EVENT DATE: 20230717
